FAERS Safety Report 4706537-X (Version None)
Quarter: 2005Q2

REPORT INFORMATION
  Report Type: 
  Country: None (occurrence: None)
  Receive Date: 20050629
  Receipt Date: 20050502
  Transmission Date: 20051028
  Serious: No
  Sender: FDA-Public Use
  Company Number: 05P-163-0298941-00

PATIENT
  Sex: Female
  Weight: 72.5755 kg

DRUGS (13)
  1. HUMIRA [Suspect]
     Indication: RHEUMATOID ARTHRITIS
     Dosage: 40 MG, 1 IN 1 WK, SUBCUTANEOUS
     Route: 058
     Dates: start: 20040101
  2. PREDNISONE TAB [Concomitant]
  3. VERAPAMIL [Concomitant]
  4. PENTOXIFYLLINE [Concomitant]
  5. GLIPIZIDE [Concomitant]
  6. AMITRIPTYLINE HCL [Concomitant]
  7. METOCLOPRAMIDE [Concomitant]
  8. FAMOTIDINE [Concomitant]
  9. VITAMIN B COMPLEX CAP [Concomitant]
  10. TOCOPHEROL CONCENTRATE CAP [Concomitant]
  11. CENTRUM [Concomitant]
  12. CALCIUM GLUCONATE [Concomitant]
  13. ATORVASTATIN CALCIUM [Concomitant]

REACTIONS (1)
  - PROCEDURAL COMPLICATION [None]
